FAERS Safety Report 24324577 (Version 1)
Quarter: 2024Q3

REPORT INFORMATION
  Report Type: Spontaneous
  Country: BR (occurrence: BR)
  Receive Date: 20240916
  Receipt Date: 20240916
  Transmission Date: 20241016
  Serious: Yes (Other)
  Sender: BAXTER
  Company Number: BR-BAXTER-2024BAX024371

PATIENT
  Age: 17 Year
  Sex: Female
  Weight: 79.3 kg

DRUGS (2)
  1. IRON [Suspect]
     Active Substance: IRON
     Indication: Mineral supplementation
     Dosage: 100 MG/5ML OF SUCROFER DILUTED IN 250 ML OF 0.9% SALINE SOLUTION, INFUSION STARTING AT 11:30 AM
     Route: 042
     Dates: start: 20240720, end: 20240720
  2. SODIUM CHLORIDE [Suspect]
     Active Substance: SODIUM CHLORIDE
     Indication: Medication dilution
     Dosage: 250 ML OF 0.9% SALINE SOLUTION USED TO DILUTE 100 MG/5ML OF SUCROFER, INFUSION STARTING AT 11:30 AM
     Route: 042
     Dates: start: 20240720, end: 20240720

REACTIONS (4)
  - Syncope [Recovered/Resolved]
  - Bradycardia [Recovered/Resolved]
  - Malaise [Recovered/Resolved]
  - Hypotension [Recovered/Resolved]

NARRATIVE: CASE EVENT DATE: 20240720
